FAERS Safety Report 24418455 (Version 1)
Quarter: 2024Q4

REPORT INFORMATION
  Report Type: Spontaneous
  Country: US (occurrence: US)
  Receive Date: 20241009
  Receipt Date: 20241009
  Transmission Date: 20250114
  Serious: No
  Sender: SANOFI AVENTIS
  Company Number: US-SA-2024SA286358

PATIENT
  Age: 28 Year
  Sex: Female
  Weight: 93 kg

DRUGS (1)
  1. DUPIXENT [Suspect]
     Active Substance: DUPILUMAB
     Indication: Neurodermatitis
     Dosage: 600 MG, 1X
     Route: 058
     Dates: start: 20240924, end: 20240924

REACTIONS (1)
  - Pain in extremity [Recovered/Resolved]

NARRATIVE: CASE EVENT DATE: 20240923
